FAERS Safety Report 6254741-4 (Version None)
Quarter: 2009Q2

REPORT INFORMATION
  Report Type: 
  Country: None (occurrence: None)
  Receive Date: 20090630
  Receipt Date: 20090625
  Transmission Date: 20091009
  Serious: Yes (Hospitalization)
  Sender: FDA-Public Use
  Company Number: FR-GUERBET-20090087

PATIENT
  Age: 62 Year
  Sex: Female

DRUGS (6)
  1. HEXABRIX [Suspect]
     Dosage: UNSPECIFIED UNIT, UNSPECIFIED INTERVAL
     Dates: start: 20090101, end: 20090101
  2. LIPIODOL: / ETHIODIZED OIL [Suspect]
     Dosage: UNSPECIFIED UNIT, UNSPECIFIED INTERNAL;
     Dates: start: 20090101, end: 20090101
  3. DIPRIVAN [Suspect]
     Dosage: UNSPECIFIED UNIT, UNSPECIFIED INTERVAL;
     Dates: start: 20090101, end: 20090101
  4. NIMBEX [Suspect]
     Dosage: UNSPECIFIED UNIT, UNSPECIFIED INTERVAL;
     Dates: start: 20090101, end: 20090101
  5. ULTIVA [Suspect]
     Dosage: UNSPECIFIED UNIT; UNSPECIFIED INTERVAL;
     Dates: start: 20090101, end: 20090101
  6. SEVOFLURANE [Suspect]
     Dosage: UNSPECIFIED UNIT, UNSPECIFIED INTERVAL
     Dates: start: 20090101, end: 20090101

REACTIONS (4)
  - ANAPHYLACTIC SHOCK [None]
  - PULMONARY ARTERIAL PRESSURE INCREASED [None]
  - RESPIRATORY DISORDER [None]
  - URTICARIA [None]
